FAERS Safety Report 6493917-8 (Version None)
Quarter: 2009Q4

REPORT INFORMATION
  Report Type: 
  Country: None (occurrence: None)
  Receive Date: 20091214
  Receipt Date: 20081121
  Transmission Date: 20100525
  Serious: No
  Sender: FDA-Public Use
  Company Number: US-BRISTOL-MYERS SQUIBB COMPANY-14417711

PATIENT
  Age: 2 Decade
  Sex: Female

DRUGS (2)
  1. ABILIFY [Suspect]
     Indication: BIPOLAR DISORDER
     Route: 048
  2. ABILIFY [Suspect]
     Indication: SCHIZOPHRENIA
     Route: 048

REACTIONS (2)
  - BRADYPHRENIA [None]
  - HYPOKINESIA [None]
